FAERS Safety Report 11026755 (Version 3)
Quarter: 2015Q3

REPORT INFORMATION
  Report Type: Spontaneous
  Country: US (occurrence: US)
  Receive Date: 20150414
  Receipt Date: 20150804
  Transmission Date: 20151125
  Serious: Yes (Hospitalization)
  Sender: FDA-Public Use
  Company Number: US-INCYTE CORPORATION-2015IN001465

PATIENT
  Sex: Female
  Weight: 49.43 kg

DRUGS (3)
  1. JAKAFI [Suspect]
     Active Substance: RUXOLITINIB
     Indication: MYELOFIBROSIS
     Dosage: 5 MG, BID
     Route: 048
     Dates: start: 20130410, end: 20150708
  2. VITAMINS NOS [Concomitant]
     Active Substance: VITAMINS
  3. ARIMIDEX [Concomitant]
     Active Substance: ANASTROZOLE

REACTIONS (8)
  - Sinusitis [Recovered/Resolved]
  - Bronchitis [Recovered/Resolved]
  - Herpes simplex [Recovered/Resolved]
  - Haemoglobin decreased [Recovered/Resolved]
  - Pneumonia [Unknown]
  - Drug dose omission [Unknown]
  - Platelet count decreased [Recovered/Resolved]
  - Haematocrit [Recovered/Resolved]

NARRATIVE: CASE EVENT DATE: 2015
